FAERS Safety Report 5176931-4 (Version None)
Quarter: 2006Q4

REPORT INFORMATION
  Report Type: 
  Country: None (occurrence: None)
  Receive Date: 20061218
  Receipt Date: 20060622
  Transmission Date: 20070319
  Serious: Yes (Other)
  Sender: FDA-Public Use
  Company Number: US-SP-2006-01566

PATIENT
  Age: 58 Year
  Sex: Male

DRUGS (10)
  1. YELLOW FEVER VACCINE [Suspect]
     Indication: IMMUNISATION
     Route: 065
     Dates: start: 19650327
  2. TETANUS TOXOID [Suspect]
     Indication: IMMUNISATION
     Route: 065
     Dates: start: 19650317
  3. TUBERCULIN PPD [Suspect]
     Indication: IMMUNISATION
     Route: 065
     Dates: start: 19650317
  4. SMALLPOX VACCINE [Suspect]
     Indication: IMMUNISATION
     Route: 065
     Dates: start: 19650317
  5. TYPHOID VACCINE [Suspect]
     Indication: IMMUNISATION
     Route: 065
     Dates: start: 19650317
  6. POLIOVIRUS VACCINE LIVE ORAL [Suspect]
     Indication: IMMUNISATION
     Route: 065
     Dates: start: 19650317
  7. TYPHUS VACCINE [Suspect]
     Indication: IMMUNISATION
     Route: 065
     Dates: start: 19650328
  8. CHOLERA VACCINE [Suspect]
     Indication: IMMUNISATION
     Route: 065
     Dates: start: 19650920
  9. INFLUENZA VACCINE [Suspect]
     Indication: IMMUNISATION
     Route: 065
     Dates: start: 19671024
  10. UNKNOWN VACCINE [Suspect]
     Indication: IMMUNISATION
     Route: 065
     Dates: start: 19650327

REACTIONS (1)
  - HEPATITIS C [None]
